FAERS Safety Report 21423498 (Version 1)
Quarter: 2022Q4

REPORT INFORMATION
  Report Type: Spontaneous
  Country: US (occurrence: None)
  Receive Date: 20221006
  Receipt Date: 20221006
  Transmission Date: 20230113
  Serious: No
  Sender: FDA-Public Use
  Company Number: None

PATIENT
  Sex: Female

DRUGS (1)
  1. LUPRON DEPOT [Suspect]
     Active Substance: LEUPROLIDE ACETATE
     Indication: Breast cancer female
     Dosage: 3.75MG MONTHLY IM
     Route: 030
     Dates: start: 20220423

REACTIONS (3)
  - Device malfunction [None]
  - Device leakage [None]
  - Product dose omission issue [None]
